FAERS Safety Report 24594125 (Version 1)
Quarter: 2024Q4

REPORT INFORMATION
  Report Type: Report from Study
  Country: CA (occurrence: CA)
  Receive Date: 20241108
  Receipt Date: 20241108
  Transmission Date: 20250114
  Serious: Yes (Other)
  Sender: RANBAXY
  Company Number: CA-SUN PHARMACEUTICAL INDUSTRIES LTD-2024R1-477977

PATIENT
  Age: 73 Year
  Sex: Female

DRUGS (7)
  1. DIPHENHYDRAMINE [Suspect]
     Active Substance: DIPHENHYDRAMINE
     Indication: Chronic spontaneous urticaria
     Dosage: 50 MILLIGRAM, DAILY
     Route: 065
  2. FAMOTIDINE [Suspect]
     Active Substance: FAMOTIDINE
     Indication: Chronic spontaneous urticaria
     Dosage: 20 MILLIGRAM, BID
     Route: 065
  3. LORATADINE [Suspect]
     Active Substance: LORATADINE
     Indication: Chronic spontaneous urticaria
     Dosage: 10-40 MG DAILY
     Route: 065
  4. RUPATADINE [Suspect]
     Active Substance: RUPATADINE
     Indication: Chronic spontaneous urticaria
     Dosage: 40 MILLIGRAM, DAILY
     Route: 065
  5. CYCLOSPORINE [Suspect]
     Active Substance: CYCLOSPORINE
     Indication: Chronic spontaneous urticaria
     Dosage: 1-3 MG KG-1
     Route: 065
  6. BILASTINE [Suspect]
     Active Substance: BILASTINE
     Indication: Chronic spontaneous urticaria
     Dosage: 20 MILLIGRAM, DAILY
     Route: 065
  7. OMALIZUMAB [Suspect]
     Active Substance: OMALIZUMAB
     Indication: Chronic spontaneous urticaria
     Dosage: 300 MILLIGRAM/Q4W
     Route: 065

REACTIONS (1)
  - Treatment failure [Unknown]
